FAERS Safety Report 12879662 (Version 3)
Quarter: 2017Q1

REPORT INFORMATION
  Report Type: Spontaneous
  Country: US (occurrence: US)
  Receive Date: 20161025
  Receipt Date: 20170130
  Transmission Date: 20170428
  Serious: Yes (Death, Other)
  Sender: FDA-Public Use
  Company Number: US-JNJFOC-20161018400

PATIENT

DRUGS (7)
  1. LOPERAMIDE HYDROCHLORIDE. [Suspect]
     Active Substance: LOPERAMIDE HYDROCHLORIDE
     Indication: WITHDRAWAL SYNDROME
     Dosage: LOPERAMIDE DOSES RANGED FROM 8 TO 400 MG/DAY.
     Route: 065
  2. METHADONE [Suspect]
     Active Substance: METHADONE HYDROCHLORIDE
     Indication: PRODUCT USED FOR UNKNOWN INDICATION
     Route: 065
  3. LOPERAMIDE HYDROCHLORIDE. [Suspect]
     Active Substance: LOPERAMIDE HYDROCHLORIDE
     Indication: SUICIDE ATTEMPT
     Dosage: LOPERAMIDE DOSES RANGED FROM 8 TO 400 MG/DAY.
     Route: 065
  4. DIPHENHYDRAMINE. [Suspect]
     Active Substance: DIPHENHYDRAMINE
     Indication: PRODUCT USED FOR UNKNOWN INDICATION
     Route: 065
  5. LOPERAMIDE HYDROCHLORIDE. [Suspect]
     Active Substance: LOPERAMIDE HYDROCHLORIDE
     Indication: INTENTIONAL PRODUCT MISUSE
     Dosage: LOPERAMIDE DOSES RANGED FROM 8 TO 400 MG/DAY.
     Route: 065
  6. LOPERAMIDE HYDROCHLORIDE. [Suspect]
     Active Substance: LOPERAMIDE HYDROCHLORIDE
     Indication: SUBSTANCE USE
     Dosage: LOPERAMIDE DOSES RANGED FROM 8 TO 400 MG/DAY.
     Route: 065
  7. ALCOHOL. [Suspect]
     Active Substance: ALCOHOL
     Indication: PRODUCT USED FOR UNKNOWN INDICATION
     Route: 065

REACTIONS (12)
  - Ventricular tachycardia [Unknown]
  - Drug abuse [Unknown]
  - Intentional product misuse [Unknown]
  - Depressed level of consciousness [Unknown]
  - Death [Fatal]
  - Torsade de pointes [Unknown]
  - Suicide attempt [Unknown]
  - Arrhythmia [Unknown]
  - Electrocardiogram QRS complex prolonged [Unknown]
  - Adverse event [Unknown]
  - Respiratory depression [Unknown]
  - Electrocardiogram QT prolonged [Unknown]
